FAERS Safety Report 21828508 (Version 1)
Quarter: 2023Q1

REPORT INFORMATION
  Report Type: Spontaneous
  Country: US (occurrence: US)
  Receive Date: 20230106
  Receipt Date: 20230106
  Transmission Date: 20230417
  Serious: No
  Sender: FDA-Public Use
  Company Number: US-COOPERSURGICAL, INC.-US-2022CPS003445

PATIENT
  Age: 20 Year
  Sex: Female
  Weight: 87.075 kg

DRUGS (3)
  1. PARAGARD T 380A [Suspect]
     Active Substance: COPPER
     Indication: Contraception
     Dosage: UNK
     Route: 015
     Dates: start: 20210315, end: 20220317
  2. NASACORT [Concomitant]
     Active Substance: TRIAMCINOLONE ACETONIDE
     Indication: Product used for unknown indication
     Dosage: UNK
     Route: 065
  3. AZELASTINE [Concomitant]
     Active Substance: AZELASTINE
     Indication: Product used for unknown indication
     Route: 055

REACTIONS (4)
  - Complication associated with device [Recovered/Resolved]
  - Device expulsion [Recovered/Resolved]
  - Abdominal pain lower [Unknown]
  - Off label use [Unknown]

NARRATIVE: CASE EVENT DATE: 20220317
